FAERS Safety Report 17753858 (Version 1)
Quarter: 2020Q2

REPORT INFORMATION
  Report Type: Spontaneous
  Country: GB (occurrence: GB)
  Receive Date: 20200506
  Receipt Date: 20200506
  Transmission Date: 20200714
  Serious: Yes (Life-Threatening, Hospitalization, Disabling)
  Sender: FDA-Public Use
  Company Number: GB-009507513-2005GBR000950

PATIENT
  Age: 79 Year
  Sex: Female

DRUGS (3)
  1. BENDROFLUMETHIAZIDE [Suspect]
     Active Substance: BENDROFLUMETHIAZIDE
     Route: 048
  2. WARFARIN [Suspect]
     Active Substance: WARFARIN
     Indication: PULMONARY EMBOLISM
     Route: 048
  3. SIMVASTATIN. [Suspect]
     Active Substance: SIMVASTATIN
     Route: 048

REACTIONS (5)
  - Liver function test abnormal [Unknown]
  - Blood calcium decreased [Unknown]
  - Blood potassium decreased [Unknown]
  - International normalised ratio increased [Recovered/Resolved]
  - Blood magnesium decreased [Unknown]
